FAERS Safety Report 5198987-5 (Version None)
Quarter: 2007Q1

REPORT INFORMATION
  Report Type: 
  Country: None (occurrence: None)
  Receive Date: 20070104
  Receipt Date: 20061221
  Transmission Date: 20070707
  Serious: Yes (Hospitalization)
  Sender: FDA-Public Use
  Company Number: HU-ELI_LILLY_AND_COMPANY-HU200612004011

PATIENT
  Sex: Male

DRUGS (1)
  1. INSULIN, HUMAN [Suspect]

REACTIONS (2)
  - HOSPITALISATION [None]
  - MEDICAL DEVICE COMPLICATION [None]
